FAERS Safety Report 6312932-8 (Version None)
Quarter: 2009Q3

REPORT INFORMATION
  Report Type: 
  Country: None (occurrence: None)
  Receive Date: 20090818
  Receipt Date: 20090804
  Transmission Date: 20100115
  Serious: Yes (Other)
  Sender: FDA-Public Use
  Company Number: US-ROCHE-630143

PATIENT
  Sex: Female
  Weight: 71.7 kg

DRUGS (4)
  1. PEG-INTERFERON A-2A (RO 25-8310) [Suspect]
     Route: 058
     Dates: start: 20051118, end: 20051223
  2. PEG-INTERFERON A-2A (RO 25-8310) [Suspect]
     Dosage: FORM: PREFILLED SYRINGE
     Route: 058
     Dates: start: 20090227, end: 20090724
  3. RIBAVIRIN [Suspect]
     Route: 048
     Dates: start: 20051118, end: 20051223
  4. RIBAVIRIN [Suspect]
     Dosage: DIVIDED DOSES
     Route: 048
     Dates: start: 20090227

REACTIONS (16)
  - ALOPECIA [None]
  - ANEURYSM [None]
  - ARTHRALGIA [None]
  - BACK PAIN [None]
  - CHEST PAIN [None]
  - CORONARY ARTERIAL STENT INSERTION [None]
  - DRUG INEFFECTIVE [None]
  - DRY SKIN [None]
  - FATIGUE [None]
  - MYOCARDIAL INFARCTION [None]
  - PRODUCTIVE COUGH [None]
  - PRURITUS [None]
  - SOCIAL AVOIDANT BEHAVIOUR [None]
  - STRESS [None]
  - STRESS AT WORK [None]
  - SUICIDAL IDEATION [None]
